FAERS Safety Report 4474085-0 (Version None)
Quarter: 2004Q4

REPORT INFORMATION
  Report Type: 
  Country: None (occurrence: None)
  Receive Date: 20041008
  Receipt Date: 20040923
  Transmission Date: 20050328
  Serious: Yes (Hospitalization)
  Sender: FDA-Public Use
  Company Number: B0346149A

PATIENT
  Age: 50 Year
  Sex: Male

DRUGS (5)
  1. LAMICTAL [Suspect]
     Indication: FRONTAL LOBE EPILEPSY
  2. OXCARBAZEPINE (OXCARBAZEPINE) [Suspect]
     Indication: FRONTAL LOBE EPILEPSY
  3. PHENYTOIN [Suspect]
     Indication: FRONTAL LOBE EPILEPSY
  4. PHENOBARBITAL TAB [Suspect]
     Indication: FRONTAL LOBE EPILEPSY
  5. VALPROATE SODIUM [Suspect]
     Indication: FRONTAL LOBE EPILEPSY

REACTIONS (14)
  - ABASIA [None]
  - ASTHENIA [None]
  - EATING DISORDER [None]
  - EXTENSOR PLANTAR RESPONSE [None]
  - FALL [None]
  - HYPOTONIA [None]
  - KYPHOSIS [None]
  - MOBILITY DECREASED [None]
  - NECK DEFORMITY [None]
  - OSTEOPOROSIS [None]
  - PARAPARESIS [None]
  - SPINAL CORD COMPRESSION [None]
  - SPINAL FRACTURE [None]
  - VISUAL DISTURBANCE [None]
